FAERS Safety Report 20429554 (Version 1)
Quarter: 2022Q1

REPORT INFORMATION
  Report Type: Spontaneous
  Country: US (occurrence: US)
  Receive Date: 20220204
  Receipt Date: 20220204
  Transmission Date: 20220423
  Serious: No
  Sender: FDA-Public Use
  Company Number: US-UNITED THERAPEUTICS-UNT-2022-002332

PATIENT
  Age: 21 Year
  Sex: Female
  Weight: 53.515 kg

DRUGS (4)
  1. REMODULIN [Suspect]
     Active Substance: TREPROSTINIL
     Indication: Pulmonary arterial hypertension
     Dosage: UNK, CONTINUING
     Route: 058
     Dates: start: 20200508
  2. REMODULIN [Suspect]
     Active Substance: TREPROSTINIL
     Dosage: 0.1008 ?G/KG, CONTINUING
     Route: 058
  3. SILDENAFIL [Concomitant]
     Active Substance: SILDENAFIL
     Indication: Product used for unknown indication
     Route: 065
  4. TRACLEER [Concomitant]
     Active Substance: BOSENTAN
     Indication: Product used for unknown indication
     Route: 065

REACTIONS (4)
  - Infusion site pain [Unknown]
  - Device use error [Unknown]
  - Device physical property issue [Unknown]
  - Dyspnoea [Unknown]

NARRATIVE: CASE EVENT DATE: 20220101
